FAERS Safety Report 19637855 (Version 4)
Quarter: 2022Q1

REPORT INFORMATION
  Report Type: Report from Study
  Country: US (occurrence: US)
  Receive Date: 20210729
  Receipt Date: 20220315
  Transmission Date: 20220423
  Serious: Yes (Hospitalization, Other)
  Sender: FDA-Public Use
  Company Number: US-BAUSCH-BL-2021-026141

PATIENT
  Age: 59 Year
  Sex: Female
  Weight: 67.918 kg

DRUGS (17)
  1. XIFAXAN [Suspect]
     Active Substance: RIFAXIMIN
     Indication: Product used for unknown indication
     Route: 048
     Dates: start: 20200413
  2. CALCIUM ACETATE [Concomitant]
     Active Substance: CALCIUM ACETATE
     Indication: Product used for unknown indication
     Dosage: 2 CAPSULE WITH EVERY MEAL
     Route: 048
     Dates: start: 20180521
  3. HUMALOG HD KWIKPEN [Concomitant]
     Indication: Product used for unknown indication
     Dosage: INSULIN PEN (100/1 UNIT/ML EACH) AS NEEDED
     Route: 058
     Dates: start: 20180521
  4. HYDROXYZINE HYDROCHLORIDE [Concomitant]
     Active Substance: HYDROXYZINE HYDROCHLORIDE
     Indication: Product used for unknown indication
     Route: 048
     Dates: start: 20210107
  5. LABETALOL [Concomitant]
     Active Substance: LABETALOL\LABETALOL HYDROCHLORIDE
     Indication: Product used for unknown indication
     Route: 048
     Dates: start: 20210107
  6. LEVOTHYROXINE [Concomitant]
     Active Substance: LEVOTHYROXINE
     Indication: Product used for unknown indication
     Dosage: 1 TABLET EVERY MORNING
     Route: 048
     Dates: start: 20180521
  7. LISINOPRIL [Concomitant]
     Active Substance: LISINOPRIL
     Indication: Product used for unknown indication
     Route: 048
     Dates: start: 20190702
  8. MELATONIN [Concomitant]
     Active Substance: MELATONIN
     Indication: Product used for unknown indication
     Dosage: 1 IN EVENING
     Route: 048
     Dates: start: 20210105
  9. NIFEDIPINE [Concomitant]
     Active Substance: NIFEDIPINE
     Indication: Product used for unknown indication
     Dosage: EXTENDED RELEASE, EVERY EVENING
     Route: 048
     Dates: start: 20180918
  10. PAXIL [Concomitant]
     Active Substance: PAROXETINE HYDROCHLORIDE
     Indication: Product used for unknown indication
     Route: 048
     Dates: start: 20190704
  11. RENVELA [Concomitant]
     Active Substance: SEVELAMER CARBONATE
     Indication: Product used for unknown indication
     Dosage: 1 TABLET WITH EVERY MEAL
     Route: 048
     Dates: start: 20190704
  12. SINGULAIR [Concomitant]
     Active Substance: MONTELUKAST SODIUM
     Indication: Product used for unknown indication
     Dosage: EVERY EVENING
     Route: 048
     Dates: start: 20210105
  13. URSODIOL [Concomitant]
     Active Substance: URSODIOL
     Indication: Pruritus
     Dosage: EVERY EVENING
     Route: 048
     Dates: start: 20210107
  14. KEPPRA [Concomitant]
     Active Substance: LEVETIRACETAM
     Indication: Myoclonus
  15. INFLUENZA VIRUS VACCINE [Concomitant]
     Active Substance: INFLUENZA VIRUS VACCINE
     Indication: Product used for unknown indication
     Dates: start: 2021
  16. HEPATITIS B VIRUS VACCINE [Concomitant]
     Active Substance: HEPATITIS B VIRUS VACCINE
     Indication: Product used for unknown indication
  17. BENADRYL [Concomitant]
     Active Substance: DIPHENHYDRAMINE HYDROCHLORIDE
     Indication: Product used for unknown indication
     Dosage: AS DIRECTED
     Route: 048
     Dates: start: 20210505

REACTIONS (12)
  - Subdural haematoma [Not Recovered/Not Resolved]
  - Confusional state [Unknown]
  - Fall [Unknown]
  - Diarrhoea [Unknown]
  - Bradycardia [Not Recovered/Not Resolved]
  - Hemiparesis [Not Recovered/Not Resolved]
  - Atrioventricular block complete [Not Recovered/Not Resolved]
  - Hypoxia [Recovered/Resolved]
  - COVID-19 [Recovered/Resolved]
  - Myoclonus [Not Recovered/Not Resolved]
  - Tachycardia [Not Recovered/Not Resolved]
  - Blood pressure increased [Unknown]

NARRATIVE: CASE EVENT DATE: 20210429
